FAERS Safety Report 5557717-5 (Version None)
Quarter: 2007Q4

REPORT INFORMATION
  Report Type: 
  Country: None (occurrence: None)
  Receive Date: 20071214
  Receipt Date: 20071205
  Transmission Date: 20080405
  Serious: Yes (Other)
  Sender: FDA-Public Use
  Company Number: PHBS2007JP20547

PATIENT
  Age: 58 Year
  Sex: Female

DRUGS (7)
  1. CYCLOSPORINE [Suspect]
     Indication: LIVER TRANSPLANT
     Route: 065
  2. TACROLIMUS [Suspect]
     Indication: LIVER TRANSPLANT
     Route: 065
  3. STEROIDS NOS [Concomitant]
     Indication: LIVER TRANSPLANT
  4. INTERFERON ALFA [Concomitant]
     Indication: HEPATITIS C VIRUS
  5. RIBAVIRIN [Concomitant]
     Indication: HEPATITIS C VIRUS
  6. PEGINTERFERON ALFA-2A [Concomitant]
     Indication: HEPATITIS C VIRUS
  7. MYCOPHENOLATE MOFETIL [Concomitant]
     Indication: LIVER TRANSPLANT
     Dosage: 1 G/DAY

REACTIONS (5)
  - CEREBELLAR ATAXIA [None]
  - FALL [None]
  - GAIT DISTURBANCE [None]
  - HEPATITIS C [None]
  - LIVER TRANSPLANT REJECTION [None]
